FAERS Safety Report 21402697 (Version 8)
Quarter: 2023Q1

REPORT INFORMATION
  Report Type: Spontaneous
  Country: US (occurrence: US)
  Receive Date: 20221003
  Receipt Date: 20230227
  Transmission Date: 20230418
  Serious: No
  Sender: FDA-Public Use
  Company Number: US-PFIZER INC-PV202200073899

PATIENT
  Age: 74 Year

DRUGS (2)
  1. PREMPRO [Suspect]
     Active Substance: ESTROGENS, CONJUGATED\MEDROXYPROGESTERONE ACETATE
     Dosage: UNK (0.3MG/1.5MG)
  2. PREMPRO [Suspect]
     Active Substance: ESTROGENS, CONJUGATED\MEDROXYPROGESTERONE ACETATE
     Dosage: UNK (0.45/1.5MG)

REACTIONS (8)
  - Drug ineffective [Unknown]
  - Product dispensing error [Unknown]
  - Transcription medication error [Unknown]
  - Hemiplegic migraine [Unknown]
  - Aplasia [Unknown]
  - Hypoaesthesia [Unknown]
  - Visual impairment [Unknown]
  - Aphasia [Unknown]
